FAERS Safety Report 8423310-X (Version None)
Quarter: 2012Q2

REPORT INFORMATION
  Report Type: 
  Country: None (occurrence: None)
  Receive Date: 20120608
  Receipt Date: 20120530
  Transmission Date: 20120825
  Serious: Yes (Other)
  Sender: FDA-Public Use
  Company Number: US-ACTELION-A-NJ2012-66552

PATIENT

DRUGS (2)
  1. SILDENAFIL [Concomitant]
  2. TRACLEER [Suspect]
     Indication: PULMONARY ARTERIAL HYPERTENSION
     Dosage: UNK
     Route: 048
     Dates: start: 20090226

REACTIONS (5)
  - HEART RATE DECREASED [None]
  - CARDIAC PACEMAKER INSERTION [None]
  - EYE PAIN [None]
  - HEADACHE [None]
  - FATIGUE [None]
